FAERS Safety Report 9752842 (Version 1)
Quarter: 2013Q4

REPORT INFORMATION
  Report Type: Spontaneous
  Country: US (occurrence: None)
  Receive Date: 20131212
  Receipt Date: 20131212
  Transmission Date: 20140711
  Serious: Yes (Other)
  Sender: FDA-Public Use
  Company Number: None

PATIENT
  Age: 55 Year
  Sex: Female
  Weight: 72.58 kg

DRUGS (11)
  1. CHOLECALCIFEROL [Concomitant]
  2. FLEXERIL [Concomitant]
  3. VASOTEC [Concomitant]
  4. PROZAC [Concomitant]
  5. LANTUS [Concomitant]
  6. SYNTHROID [Concomitant]
  7. GLUCOPHAGE [Concomitant]
  8. PRAVACHOL [Concomitant]
  9. JANUVIA [Concomitant]
  10. CANAGLIFLOZIN [Suspect]
     Indication: DIABETES MELLITUS
     Dates: start: 20130810, end: 20130812
  11. ALBUTEROL HFA [Concomitant]

REACTIONS (5)
  - Swelling face [None]
  - Erythema [None]
  - Pain [None]
  - Paraesthesia [None]
  - Hypoaesthesia [None]
